FAERS Safety Report 22601057 (Version 1)
Quarter: 2023Q2

REPORT INFORMATION
  Report Type: Spontaneous
  Country: US (occurrence: US)
  Receive Date: 20230614
  Receipt Date: 20230614
  Transmission Date: 20230721
  Serious: Yes (Other)
  Sender: FDA-Public Use
  Company Number: US-002147023-NVSC2023US132484

PATIENT
  Sex: Female

DRUGS (1)
  1. PREDNISOLONE ACETATE [Suspect]
     Active Substance: PREDNISOLONE ACETATE
     Indication: Product used for unknown indication
     Dosage: UNK, QID (1 OZ)
     Route: 065

REACTIONS (6)
  - Urinary retention [Unknown]
  - Palpitations [Unknown]
  - Nightmare [Unknown]
  - Dyspepsia [Unknown]
  - Headache [Unknown]
  - Pain [Unknown]
